FAERS Safety Report 8519701-9 (Version None)
Quarter: 2012Q3

REPORT INFORMATION
  Report Type: 
  Country: None (occurrence: None)
  Receive Date: 20120719
  Receipt Date: 20120710
  Transmission Date: 20120928
  Serious: Yes (Other)
  Sender: FDA-Public Use
  Company Number: DK-BRISTOL-MYERS SQUIBB COMPANY-16673980

PATIENT
  Age: 57 Year
  Sex: Male
  Weight: 105 kg

DRUGS (2)
  1. ABILIFY [Suspect]
     Indication: DEPRESSION
     Dosage: STYRKE: 5 MG
     Route: 048
     Dates: start: 20080507, end: 20080521
  2. LAMICTAL [Concomitant]
     Indication: EPILEPSY
     Dates: start: 20051010

REACTIONS (3)
  - DIZZINESS [None]
  - VENOUS THROMBOSIS [None]
  - DYSSTASIA [None]
